FAERS Safety Report 4891945-7 (Version None)
Quarter: 2006Q1

REPORT INFORMATION
  Report Type: 
  Country: None (occurrence: None)
  Receive Date: 20060123
  Receipt Date: 20051220
  Transmission Date: 20060701
  Serious: Yes (Hospitalization)
  Sender: FDA-Public Use
  Company Number: HK200511002324

PATIENT
  Age: 52 Year
  Sex: Male
  Weight: 56.6 kg

DRUGS (1)
  1. GEMCITABINE HYDROCHLORIDE (GEMCITABINE HYDROCHLORIDE) VIAL [Suspect]
     Indication: NASOPHARYNGEAL CANCER
     Dosage: 2012 MG, INTRAVENOUS
     Route: 042
     Dates: start: 20050512, end: 20051110

REACTIONS (4)
  - EPISTAXIS [None]
  - HAEMOGLOBIN DECREASED [None]
  - PLATELET COUNT DECREASED [None]
  - PULMONARY HAEMORRHAGE [None]
